FAERS Safety Report 5941983-8 (Version None)
Quarter: 2008Q4

REPORT INFORMATION
  Report Type: 
  Country: None (occurrence: None)
  Receive Date: 20081031
  Receipt Date: 20081024
  Transmission Date: 20090506
  Serious: Yes (Other)
  Sender: FDA-Public Use
  Company Number: DSA_32587_2008

PATIENT
  Sex: Male

DRUGS (1)
  1. VASERETIC [Suspect]
     Indication: DRUG USE FOR UNKNOWN INDICATION
     Dosage: DF

REACTIONS (2)
  - ARTHROPATHY [None]
  - RENAL TUBULAR NECROSIS [None]
